FAERS Safety Report 4560188-9 (Version None)
Quarter: 2005Q1

REPORT INFORMATION
  Report Type: 
  Country: None (occurrence: None)
  Receive Date: 20050125
  Receipt Date: 20050114
  Transmission Date: 20050727
  Serious: Yes (Other)
  Sender: FDA-Public Use
  Company Number: JP-BRISTOL-MYERS SQUIBB COMPANY-12830550

PATIENT
  Age: 47 Year
  Sex: Male

DRUGS (9)
  1. LASTET [Suspect]
     Indication: TESTIS CANCER
     Route: 042
     Dates: start: 20040927, end: 20041001
  2. IFOMIDE [Suspect]
     Indication: TESTIS CANCER
     Route: 042
     Dates: start: 20040927, end: 20041001
  3. UROMITEXAN [Suspect]
     Indication: PROPHYLAXIS
     Route: 042
     Dates: start: 20040927, end: 20041001
  4. PARAPLATIN [Suspect]
     Indication: TESTIS CANCER
     Route: 042
     Dates: start: 20040927, end: 20041001
  5. ZANTAC [Suspect]
     Indication: PROPHYLAXIS AGAINST GASTROINTESTINAL ULCER
     Route: 042
     Dates: start: 20040927, end: 20041001
  6. DUROTEP [Suspect]
     Indication: ANALGESIC EFFECT
     Dosage: 5-10 MG/3PER DAY
     Dates: start: 20040318, end: 20041001
  7. ZOVIRAX [Suspect]
     Indication: INFECTION PROPHYLAXIS
     Route: 048
     Dates: start: 20040907, end: 20041001
  8. DIAMOX [Suspect]
     Indication: PROPHYLAXIS
     Dosage: 13-SEP-2004 TO 18-SEP-2004 26-SEP-2004 TO 30-SEP-2004
     Route: 048
     Dates: start: 20040913, end: 20040930
  9. FUNGIZONE [Concomitant]
     Dates: start: 20040914, end: 20041001

REACTIONS (2)
  - SICK SINUS SYNDROME [None]
  - VENTRICULAR EXTRASYSTOLES [None]
